FAERS Safety Report 7864438 (Version 2)
Quarter: 2012Q4

REPORT INFORMATION
  Report Type: 
  Country: CA (occurrence: CA)
  Receive Date: 20110321
  Receipt Date: 20121106
  Transmission Date: 20130627
  Serious: Yes (Life-Threatening, Other)
  Sender: FDA-Public Use
  Company Number: PHHY2009CA18917

PATIENT
  Sex: Male

DRUGS (2)
  1. SANDOSTATIN LAR [Suspect]
     Indication: NEUROENDOCRINE TUMOUR
     Dosage: 40 mg, QMO
     Route: 030
     Dates: start: 20081126, end: 20100826
  2. SANDOSTATIN LAR [Suspect]
     Dosage: 30 mg, QMO
     Route: 030
     Dates: end: 20100907

REACTIONS (15)
  - Feeling abnormal [Unknown]
  - Malignant neoplasm progression [Unknown]
  - Pyrexia [Recovering/Resolving]
  - Blood pressure increased [Unknown]
  - Localised infection [Unknown]
  - Pain in extremity [Unknown]
  - Hyperhidrosis [Unknown]
  - Malaise [Unknown]
  - Joint injury [Unknown]
  - Heart rate increased [Unknown]
  - Flatulence [Not Recovered/Not Resolved]
  - Abdominal discomfort [Unknown]
  - Fatigue [Unknown]
  - Dizziness [Unknown]
  - Nausea [Unknown]
